FAERS Safety Report 11878726 (Version 1)
Quarter: 2015Q4

REPORT INFORMATION
  Report Type: Spontaneous
  Country: IT (occurrence: IT)
  Receive Date: 20151230
  Receipt Date: 20151230
  Transmission Date: 20160305
  Serious: Yes (Other)
  Sender: FDA-Public Use
  Company Number: IT-TEVA-621018ACC

PATIENT
  Age: 68 Year
  Sex: Female

DRUGS (4)
  1. CAPECITABINE. [Suspect]
     Active Substance: CAPECITABINE
     Indication: COLON CANCER
     Dosage: 1 DOSAGE FORMS DAILY; 1 DF DAILY
     Route: 048
     Dates: start: 20151119, end: 20151218
  2. DELTACORTENE - 25 MG COMPRESSE [Concomitant]
     Indication: PREMEDICATION
     Dosage: 1 DF
     Route: 048
     Dates: start: 20151118, end: 20151118
  3. OXALIPLATINO SANDOZ - SANDOZ S.P.A. [Suspect]
     Active Substance: OXALIPLATIN
     Indication: COLON CANCER
     Dosage: 228.8 MG TOTAL
     Route: 042
     Dates: start: 20151119, end: 20151119
  4. ZOFENOPRIL CALCIUM [Concomitant]
     Active Substance: ZOFENOPRIL CALCIUM
     Indication: HYPERTENSION
     Dosage: 30 MG
     Route: 048

REACTIONS (1)
  - Laryngospasm [Recovered/Resolved]

NARRATIVE: CASE EVENT DATE: 20151119
